FAERS Safety Report 8546487-4 (Version None)
Quarter: 2012Q3

REPORT INFORMATION
  Report Type: 
  Country: None (occurrence: None)
  Receive Date: 20120727
  Receipt Date: 20120712
  Transmission Date: 20120928
  Serious: Yes (Other)
  Sender: FDA-Public Use
  Company Number: CN-WATSON-2012-12719

PATIENT
  Age: 27 Year
  Sex: Female

DRUGS (4)
  1. AZATHIOPRINE [Suspect]
     Indication: SYSTEMIC LUPUS ERYTHEMATOSUS
     Dosage: 0.1 G, DAILY
     Route: 048
  2. CYCLOPHOSPHAMIDE [Suspect]
     Indication: SYSTEMIC LUPUS ERYTHEMATOSUS
     Dosage: 0.4 G, 1/WEEK
     Route: 065
  3. HYDROXYCHLOROQUINE SULFATE [Suspect]
     Indication: SYSTEMIC LUPUS ERYTHEMATOSUS
     Dosage: 0.2 G, DAILY
     Route: 065
  4. PREDNISONE TAB [Suspect]
     Indication: SYSTEMIC LUPUS ERYTHEMATOSUS
     Dosage: 30 MG, DAILY
     Route: 065

REACTIONS (4)
  - FUNGAL SKIN INFECTION [None]
  - FUNGAL INFECTION [None]
  - PULMONARY TUBERCULOSIS [None]
  - CUSHINGOID [None]
